FAERS Safety Report 21498001 (Version 4)
Quarter: 2023Q1

REPORT INFORMATION
  Report Type: Report from Study
  Country: US (occurrence: US)
  Receive Date: 20221024
  Receipt Date: 20230317
  Transmission Date: 20230417
  Serious: No
  Sender: FDA-Public Use
  Company Number: US-NOVARTISTESTPH-NVSC2022US237448

PATIENT
  Sex: Female

DRUGS (2)
  1. PIQRAY [Suspect]
     Active Substance: ALPELISIB
     Indication: Product used for unknown indication
     Dosage: 250 MG (2 WEEKS)
     Route: 048
  2. PIQRAY [Suspect]
     Active Substance: ALPELISIB
     Dosage: 200 MG, QD (DOSE REDUCED)
     Route: 048

REACTIONS (10)
  - Oral pain [Unknown]
  - Oral discomfort [Recovered/Resolved]
  - Oral discomfort [Unknown]
  - Thirst [Unknown]
  - Fatigue [Unknown]
  - Lip swelling [Unknown]
  - Decreased appetite [Unknown]
  - Abnormal loss of weight [Unknown]
  - Diarrhoea [Unknown]
  - Illness [Unknown]
